FAERS Safety Report 18751407 (Version 1)
Quarter: 2021Q1

REPORT INFORMATION
  Report Type: Spontaneous
  Country: FR (occurrence: FR)
  Receive Date: 20210118
  Receipt Date: 20210118
  Transmission Date: 20210419
  Serious: Yes (Other)
  Sender: FDA-Public Use
  Company Number: FR-PFIZER INC-2021027900

PATIENT
  Age: 51 Year
  Sex: Female

DRUGS (2)
  1. OLUMIANT [Suspect]
     Active Substance: BARICITINIB
     Indication: PSORIATIC ARTHROPATHY
     Dosage: 4 MG, DAILY
     Route: 048
     Dates: start: 20191114, end: 202007
  2. METHOTREXATE SODIUM. [Suspect]
     Active Substance: METHOTREXATE SODIUM
     Indication: PSORIATIC ARTHROPATHY
     Dosage: 17.5 MG, DAILY
     Route: 048
     Dates: start: 20190509, end: 202007

REACTIONS (2)
  - Dermatitis bullous [Recovered/Resolved]
  - Product use issue [Unknown]

NARRATIVE: CASE EVENT DATE: 20190509
